FAERS Safety Report 7977516-4 (Version None)
Quarter: 2011Q4

REPORT INFORMATION
  Report Type: 
  Country: None (occurrence: None)
  Receive Date: 20111214
  Receipt Date: 20111121
  Transmission Date: 20120403
  Serious: Yes (Other)
  Sender: FDA-Public Use
  Company Number: US-AMGEN-USASP2011061652

PATIENT
  Age: 76 Year
  Sex: Female

DRUGS (3)
  1. ENBREL [Suspect]
     Indication: RHEUMATOID ARTHRITIS
     Dosage: 50 MG, QWK
  2. PACERONE [Concomitant]
  3. ANTIFUNGALS [Concomitant]
     Indication: TOOTH INFECTION
     Dosage: UNK

REACTIONS (3)
  - TOOTH INFECTION [None]
  - CELLULITIS [None]
  - SEPSIS [None]
